FAERS Safety Report 13177328 (Version 1)
Quarter: 2017Q1

REPORT INFORMATION
  Report Type: Report from Study
  Country: US (occurrence: US)
  Receive Date: 20170201
  Receipt Date: 20170201
  Transmission Date: 20170428
  Serious: Yes (Hospitalization)
  Sender: FDA-Public Use
  Company Number: US-EXELIXIS-CABO-16005924

PATIENT
  Age: 61 Year
  Sex: Female
  Weight: 52.15 kg

DRUGS (1)
  1. COMETRIQ [Suspect]
     Active Substance: CABOZANTINIB S-MALATE
     Indication: MEDULLARY THYROID CANCER
     Dosage: 140 MG, QD
     Route: 048
     Dates: start: 20151231, end: 201602

REACTIONS (10)
  - Diarrhoea [Recovering/Resolving]
  - Intestinal perforation [Not Recovered/Not Resolved]
  - Insomnia [Unknown]
  - Decreased appetite [Recovered/Resolved]
  - Vomiting [Unknown]
  - Neck mass [Not Recovered/Not Resolved]
  - Nausea [Recovering/Resolving]
  - Dysphagia [Not Recovered/Not Resolved]
  - Abdominal pain upper [Unknown]
  - Weight decreased [Unknown]

NARRATIVE: CASE EVENT DATE: 20160105
